FAERS Safety Report 24685411 (Version 1)
Quarter: 2024Q4

REPORT INFORMATION
  Report Type: Report from Study
  Country: US (occurrence: US)
  Receive Date: 20241202
  Receipt Date: 20241202
  Transmission Date: 20250114
  Serious: Yes (Other)
  Sender: ABBVIE
  Company Number: US-ABBVIE-5913589

PATIENT
  Age: 48 Year
  Sex: Male

DRUGS (2)
  1. SKYRIZI [Suspect]
     Active Substance: RISANKIZUMAB-RZAA
     Indication: Psoriasis
     Route: 058
     Dates: start: 20200513
  2. SKYRIZI [Suspect]
     Active Substance: RISANKIZUMAB-RZAA
     Dosage: LAST ADMIN DATE 2020
     Route: 058
     Dates: start: 20200122

REACTIONS (5)
  - Stomal hernia [Not Recovered/Not Resolved]
  - Hepatic enzyme decreased [Recovering/Resolving]
  - Arthralgia [Recovering/Resolving]
  - Hepatic steatosis [Recovering/Resolving]
  - Crohn^s disease [Recovering/Resolving]
